FAERS Safety Report 4780661-8 (Version None)
Quarter: 2005Q3

REPORT INFORMATION
  Report Type: 
  Country: None (occurrence: None)
  Receive Date: 20050926
  Receipt Date: 20050915
  Transmission Date: 20060218
  Serious: Yes (Other)
  Sender: FDA-Public Use
  Company Number: 2005129615

PATIENT
  Age: 66 Year
  Sex: Female
  Weight: 58.0604 kg

DRUGS (4)
  1. ZOLOFT [Suspect]
     Indication: DEPRESSION
     Dosage: (DAILY)
     Dates: start: 20050101, end: 20050101
  2. PREVACID [Concomitant]
  3. PREDNISONE [Concomitant]
  4. AMBIEN [Concomitant]

REACTIONS (2)
  - BONE DISORDER [None]
  - KNEE ARTHROPLASTY [None]
